FAERS Safety Report 5249890-3 (Version None)
Quarter: 2007Q1

REPORT INFORMATION
  Report Type: 
  Country: None (occurrence: None)
  Receive Date: 20070228
  Receipt Date: 20070213
  Transmission Date: 20070707
  Serious: Yes (Death, Hospitalization)
  Sender: FDA-Public Use
  Company Number: HQWYE555025OCT06

PATIENT
  Sex: Male
  Weight: 76 kg

DRUGS (13)
  1. ENBREL [Suspect]
     Indication: RHEUMATOID ARTHRITIS
     Route: 058
     Dates: start: 20060828, end: 20061018
  2. DECADRON [Suspect]
     Indication: RHEUMATOID ARTHRITIS
     Dosage: UNKNOWN
     Route: 048
  3. ISCOTIN [Concomitant]
     Dosage: UNKNOWN
     Route: 048
  4. ALFAROL [Concomitant]
     Dosage: UNKNOWN
     Route: 048
  5. BLOPRESS [Concomitant]
     Dosage: UNKNOWN
     Route: 048
  6. PYDOXAL [Concomitant]
     Dosage: UNKNOWN
     Route: 048
  7. AMOBAN [Concomitant]
     Dosage: UNKNOWN
     Route: 048
  8. ISODINE [Concomitant]
     Dosage: UNKNOWN
     Route: 050
  9. LOXONIN [Concomitant]
     Indication: RHEUMATOID ARTHRITIS
     Dosage: UNKNOWN
     Route: 048
  10. MYCOSPOR [Concomitant]
     Dosage: UNKNOWN
     Route: 061
  11. CATLEP [Concomitant]
     Indication: RHEUMATOID ARTHRITIS
     Dosage: UNKNOWN
     Route: 048
  12. D-PENICILLAMINE [Concomitant]
     Indication: RHEUMATOID ARTHRITIS
     Route: 048
     Dates: start: 20051207, end: 20061018
  13. SUCRALFATE [Concomitant]
     Dosage: UNKNOWN
     Route: 048

REACTIONS (5)
  - CYTOMEGALOVIRUS VIRAEMIA [None]
  - ENTERITIS INFECTIOUS [None]
  - PNEUMOCYSTIS JIROVECI PNEUMONIA [None]
  - PROTEIN-LOSING GASTROENTEROPATHY [None]
  - RENAL DISORDER [None]
